FAERS Safety Report 21305683 (Version 2)
Quarter: 2022Q3

REPORT INFORMATION
  Report Type: Other
  Country: IN (occurrence: None)
  Receive Date: 20220908
  Receipt Date: 20220912
  Transmission Date: 20221026
  Serious: Yes (Hospitalization)
  Sender: FDA-Public Use
  Company Number: IN-ROCHE-3174873

PATIENT
  Age: 24 Year
  Sex: Male

DRUGS (5)
  1. CELLCEPT [Suspect]
     Active Substance: MYCOPHENOLATE MOFETIL
     Indication: Renal transplant
     Route: 048
     Dates: start: 20220519
  2. PREDNISOLONE [Concomitant]
     Active Substance: PREDNISOLONE
     Dosage: FOR 1 MONTH?10.5 MG ON 20/JUN/2022
     Route: 048
     Dates: start: 20220616, end: 20220715
  3. PANTOCID (INDIA) [Concomitant]
     Dosage: BEFORE FOOD ORALLY FOR 1 MONTH
     Route: 048
     Dates: start: 20220616, end: 20220715
  4. TACROLIMUS [Concomitant]
     Active Substance: TACROLIMUS
     Dosage: BEFORE FOOD ORALLY FOR 1 WEEK, 2.5 MG MORNING, 2.75 EVENING 1 HR BEFORE MEAL
     Route: 048
     Dates: start: 20220616, end: 20220622
  5. CELLCEPT [Concomitant]
     Active Substance: MYCOPHENOLATE MOFETIL
     Dosage: AFTER FOOD FOR 1 MONTH
     Route: 065
     Dates: start: 20220616, end: 20220715

REACTIONS (2)
  - Dehydration [Recovered/Resolved]
  - Sepsis [Recovered/Resolved]

NARRATIVE: CASE EVENT DATE: 20220528
